FAERS Safety Report 5917597-2 (Version None)
Quarter: 2008Q4

REPORT INFORMATION
  Report Type: 
  Country: None (occurrence: None)
  Receive Date: 20081010
  Receipt Date: 20081010
  Transmission Date: 20090506
  Serious: Yes (Hospitalization)
  Sender: FDA-Public Use
  Company Number: None

PATIENT
  Sex: Male
  Weight: 68 kg

DRUGS (4)
  1. FLUOROURACIL [Suspect]
     Dosage: 4596 MG
  2. ELOXATIN [Suspect]
     Dosage: 150 MG
  3. ERBITUX [Suspect]
     Dosage: 1148 MG
  4. LEUCOVORIN CALCIUM [Suspect]
     Dosage: 708 MG

REACTIONS (5)
  - CHILLS [None]
  - FEBRILE NEUTROPENIA [None]
  - HYPOPHAGIA [None]
  - HYPOTENSION [None]
  - SYNCOPE [None]
